APPROVED DRUG PRODUCT: FUROXONE
Active Ingredient: FURAZOLIDONE
Strength: 50MG/15ML
Dosage Form/Route: SUSPENSION;ORAL
Application: N011323 | Product #002
Applicant: SHIRE DEVELOPMENT INC
Approved: Approved Prior to Jan 1, 1982 | RLD: No | RS: No | Type: DISCN